FAERS Safety Report 23234995 (Version 1)
Quarter: 2023Q4

REPORT INFORMATION
  Report Type: Spontaneous
  Country: US (occurrence: US)
  Receive Date: 20231128
  Receipt Date: 20231128
  Transmission Date: 20240109
  Serious: No
  Sender: FDA-Public Use
  Company Number: US-PFIZER INC-202300377399

PATIENT
  Age: 67 Year
  Sex: Female

DRUGS (1)
  1. PAXLOVID [Suspect]
     Active Substance: NIRMATRELVIR\RITONAVIR
     Indication: COVID-19 treatment
     Dosage: UNK
     Dates: start: 20231115

REACTIONS (6)
  - Feeling abnormal [Unknown]
  - Dreamy state [Unknown]
  - Oral pain [Unknown]
  - Stomatitis [Unknown]
  - Lip pain [Unknown]
  - Bruxism [Unknown]

NARRATIVE: CASE EVENT DATE: 20231101
